FAERS Safety Report 17428524 (Version 2)
Quarter: 2020Q1

REPORT INFORMATION
  Report Type: Spontaneous
  Country: US (occurrence: US)
  Receive Date: 20200218
  Receipt Date: 20200229
  Transmission Date: 20200409
  Serious: No
  Sender: FDA-Public Use
  Company Number: US-TORRENT-00009671

PATIENT
  Sex: Female
  Weight: 79 kg

DRUGS (2)
  1. DILZEM [Concomitant]
     Active Substance: DILTIAZEM
     Indication: CARDIAC MURMUR
     Route: 048
  2. MONTELUKAST [Suspect]
     Active Substance: MONTELUKAST SODIUM
     Indication: ASTHMA
     Dosage: STARTED TAKING IT- 2 WEEKS AGO
     Route: 048
     Dates: start: 202001, end: 2020

REACTIONS (2)
  - Product taste abnormal [Unknown]
  - Product odour abnormal [Unknown]

NARRATIVE: CASE EVENT DATE: 2020
